FAERS Safety Report 11782887 (Version 1)
Quarter: 2015Q4

REPORT INFORMATION
  Report Type: Report from Study
  Country: US (occurrence: US)
  Receive Date: 20151127
  Receipt Date: 20151127
  Transmission Date: 20160305
  Serious: Yes (Hospitalization)
  Sender: FDA-Public Use
  Company Number: US-JNJFOC-20151121194

PATIENT
  Sex: Male

DRUGS (1)
  1. INVOKANA [Suspect]
     Active Substance: CANAGLIFLOZIN
     Indication: DIABETES MELLITUS
     Route: 048
     Dates: end: 2015

REACTIONS (9)
  - Dehydration [Unknown]
  - Blood glucose increased [Unknown]
  - Loss of consciousness [Unknown]
  - Wheelchair user [Unknown]
  - Ligament rupture [Recovering/Resolving]
  - Fall [Unknown]
  - Tibia fracture [Recovering/Resolving]
  - Adverse event [Unknown]
  - Muscular weakness [Unknown]

NARRATIVE: CASE EVENT DATE: 2015
